FAERS Safety Report 5148756-7 (Version None)
Quarter: 2006Q4

REPORT INFORMATION
  Report Type: 
  Country: None (occurrence: None)
  Receive Date: 20061107
  Receipt Date: 20061024
  Transmission Date: 20070319
  Serious: No
  Sender: FDA-Public Use
  Company Number: CLOF-10322

PATIENT
  Age: 9 Year
  Sex: Female
  Weight: 25.2 kg

DRUGS (14)
  1. CLOFARABINE [Suspect]
     Indication: ACUTE LYMPHOCYTIC LEUKAEMIA RECURRENT
     Dosage: 20 MG QD X 5 IV
     Route: 042
     Dates: start: 20060602, end: 20060606
  2. CLOFARABINE [Suspect]
     Indication: ACUTE LYMPHOCYTIC LEUKAEMIA RECURRENT
     Dosage: 19.4 MG QD IV
     Route: 042
     Dates: start: 20060705, end: 20060708
  3. CLOFARABINE [Suspect]
     Indication: ACUTE LYMPHOCYTIC LEUKAEMIA RECURRENT
     Dosage: 19.4 MG QD IV
     Route: 042
     Dates: start: 20060802, end: 20060805
  4. ETOPOSIDE [Suspect]
     Indication: ACUTE LYMPHOCYTIC LEUKAEMIA RECURRENT
     Dosage: 75 MG QD X 5 IV
     Route: 042
     Dates: start: 20060602, end: 20060606
  5. ETOPOSIDE [Suspect]
     Indication: ACUTE LYMPHOCYTIC LEUKAEMIA RECURRENT
     Dosage: 73 MG QD IV
     Route: 042
     Dates: start: 20060705, end: 20060708
  6. ETOPOSIDE [Suspect]
     Indication: ACUTE LYMPHOCYTIC LEUKAEMIA RECURRENT
     Dosage: 73 MG QD IV
     Route: 042
     Dates: start: 20060802, end: 20060805
  7. CYCLOPHOSPHAMIDE [Suspect]
     Indication: ACUTE LYMPHOCYTIC LEUKAEMIA RECURRENT
     Dosage: 340 MG QD X 5 IV
     Route: 042
     Dates: start: 20060602, end: 20060606
  8. CYCLOPHOSPHAMIDE [Suspect]
     Indication: ACUTE LYMPHOCYTIC LEUKAEMIA RECURRENT
     Dosage: 330 MG QD IV
     Route: 042
     Dates: start: 20060705, end: 20060708
  9. CYCLOPHOSPHAMIDE [Suspect]
     Dosage: 330 MG QD IV
     Route: 042
     Dates: start: 20060802, end: 20060805
  10. AMBIEN [Concomitant]
  11. CHLORHEXIDINE GLUCONATE [Concomitant]
  12. LEVAQUIN [Concomitant]
  13. ZOFRAN [Concomitant]
  14. VORICONAZOLE [Concomitant]

REACTIONS (12)
  - ALLOGENIC BONE MARROW TRANSPLANTATION THERAPY [None]
  - ANAPHYLACTIC REACTION [None]
  - BRONCHIECTASIS [None]
  - CATHETER SITE DISCHARGE [None]
  - CATHETER SITE ERYTHEMA [None]
  - CORYNEBACTERIUM INFECTION [None]
  - ENTEROCOCCAL INFECTION [None]
  - FUNGUS SEROLOGY TEST POSITIVE [None]
  - HYPOKALAEMIA [None]
  - LUNG HYPERINFLATION [None]
  - OBSTRUCTIVE AIRWAYS DISORDER [None]
  - STEM CELL TRANSPLANT [None]
